FAERS Safety Report 4846387-7 (Version None)
Quarter: 2005Q4

REPORT INFORMATION
  Report Type: 
  Country: None (occurrence: None)
  Receive Date: 20051128
  Receipt Date: 20051110
  Transmission Date: 20060501
  Serious: Yes (Death)
  Sender: FDA-Public Use
  Company Number: EWC051046615

PATIENT
  Age: 73 Year
  Sex: Female
  Weight: 45 kg

DRUGS (7)
  1. FORTEO [Suspect]
     Indication: OSTEOPOROSIS
     Dosage: 20 UG, DAILY (1/D), SUBCUTANEOUS
     Route: 058
     Dates: start: 20041104, end: 20050920
  2. ASPIRIN [Concomitant]
  3. SELECTIN (PRAVASTATIN SODIUM) [Concomitant]
  4. PANTOPRAZOLE SODIUM [Concomitant]
  5. CALCIUM (CALCIUM) [Concomitant]
  6. VITAMIN D [Concomitant]
  7. FORTEO PEN, 250MCG/ML(3ML) (FORTEO PEN 250MCG/ML (3ML)) [Concomitant]

REACTIONS (2)
  - MALAISE [None]
  - SUDDEN DEATH [None]
